FAERS Safety Report 20152666 (Version 1)
Quarter: 2021Q4

REPORT INFORMATION
  Report Type: Spontaneous
  Country: US (occurrence: US)
  Receive Date: 20211206
  Receipt Date: 20211206
  Transmission Date: 20220303
  Serious: Yes (Other)
  Sender: FDA-Public Use
  Company Number: US-INCYTE CORPORATION-2021IN011126

PATIENT

DRUGS (1)
  1. JAKAFI [Suspect]
     Active Substance: RUXOLITINIB
     Dosage: TAKE 1/2 TABLET (5MG) BY MOUTH, EVERY 12 HOURS, AVOID GRAPEFRUIT
     Route: 048
     Dates: start: 20130913

REACTIONS (2)
  - Neuropathy peripheral [Not Recovered/Not Resolved]
  - Wrong technique in product usage process [Unknown]
